FAERS Safety Report 7909373-6 (Version None)
Quarter: 2011Q4

REPORT INFORMATION
  Report Type: 
  Country: None (occurrence: None)
  Receive Date: 20111111
  Receipt Date: 20110922
  Transmission Date: 20120403
  Serious: Yes (Hospitalization)
  Sender: FDA-Public Use
  Company Number: US-ELI_LILLY_AND_COMPANY-US200909006131

PATIENT
  Sex: Female
  Weight: 85.397 kg

DRUGS (15)
  1. HYALURONATE SODIUM [Concomitant]
     Route: 062
  2. DARVOCET-N 50 [Concomitant]
     Dosage: 100 D/F, AS NEEDED
     Route: 048
  3. CETUXIMAB [Suspect]
     Indication: NON-SMALL CELL LUNG CANCER METASTATIC
     Dosage: 740 MG, UNK
     Route: 042
     Dates: start: 20090612, end: 20090612
  4. LEVAQUIN [Concomitant]
     Dosage: UNK, AS NEEDED
     Route: 048
  5. ACETAMINOPHEN [Concomitant]
     Dosage: 650 MG, AS NEEDED
     Route: 048
  6. DOCUSATE [Concomitant]
     Dosage: 100 MG, DAILY (1/D)
     Route: 048
  7. BENZONATATE [Concomitant]
     Dosage: 200 MG, AS NEEDED
     Route: 048
  8. PROMETHAZINE [Concomitant]
     Dosage: UNK, AS NEEDED
     Route: 048
  9. DIAZEPAM [Concomitant]
     Dosage: 2 MG, AS NEEDED
     Route: 048
  10. VITAMIN TAB [Concomitant]
     Dosage: 1 D/F, DAILY (1/D)
     Route: 048
  11. MECLIZINE [Concomitant]
     Dosage: 25 MG, AS NEEDED
     Route: 048
  12. PEMETREXED [Suspect]
     Indication: NON-SMALL CELL LUNG CANCER METASTATIC
     Dosage: 925 MG, UNK
     Route: 042
     Dates: start: 20090612, end: 20090612
  13. VITAMIN B-12 [Concomitant]
     Route: 030
  14. KEPPRA [Concomitant]
     Dosage: 500 MG, 2/D
     Route: 048
  15. DEXAMETHASONE [Concomitant]
     Dosage: 2 MG, OTHER
     Route: 048

REACTIONS (2)
  - MOBILITY DECREASED [None]
  - DEPRESSED LEVEL OF CONSCIOUSNESS [None]
